FAERS Safety Report 6284415-5 (Version None)
Quarter: 2009Q3

REPORT INFORMATION
  Report Type: 
  Country: None (occurrence: None)
  Receive Date: 20090727
  Receipt Date: 20090717
  Transmission Date: 20100115
  Serious: Yes (Hospitalization)
  Sender: FDA-Public Use
  Company Number: US-ROCHE-644962

PATIENT
  Sex: Female

DRUGS (11)
  1. VALIUM [Suspect]
     Indication: DRUG USE FOR UNKNOWN INDICATION
     Dosage: INTENTIONAL OVERDOSE ON 15 JUNE 2009
     Route: 065
  2. AMBIEN [Suspect]
     Indication: INSOMNIA
     Dosage: INTENTIONAL OVERDOSE ON 15 JUNE 2009
     Route: 065
  3. SAVELLA [Suspect]
     Indication: FIBROMYALGIA
     Route: 048
     Dates: start: 20090519, end: 20090519
  4. SAVELLA [Suspect]
     Route: 048
     Dates: start: 20090520, end: 20090521
  5. SAVELLA [Suspect]
     Route: 048
     Dates: start: 20090522, end: 20090525
  6. SAVELLA [Suspect]
     Route: 048
     Dates: start: 20090526, end: 20090615
  7. LEXAPRO [Concomitant]
     Indication: DEPRESSION
     Dosage: OTHER INDICATION: POST-TRAUMATIC STRESS DISORDER
  8. SYNTHROID [Concomitant]
  9. CYMBALTA [Concomitant]
  10. FLEXERIL [Concomitant]
  11. RITALIN [Concomitant]

REACTIONS (2)
  - MULTIPLE DRUG OVERDOSE INTENTIONAL [None]
  - SUICIDE ATTEMPT [None]
